FAERS Safety Report 8837690 (Version 2)
Quarter: 2012Q4

REPORT INFORMATION
  Report Type: 
  Country: TR (occurrence: TR)
  Receive Date: 20121012
  Receipt Date: 20121102
  Transmission Date: 20130627
  Serious: Yes (Death)
  Sender: FDA-Public Use
  Company Number: TR-ALEXION-A201201912

PATIENT
  Age: 11 Year
  Sex: Female

DRUGS (3)
  1. SOLIRIS 300MG [Suspect]
     Indication: HAEMOLYTIC URAEMIC SYNDROME
     Dosage: 900 mg, qw
     Route: 042
     Dates: start: 20120914
  2. NOVOSEVEN [Concomitant]
     Dosage: 3-4 mg, UNK
     Route: 042
     Dates: start: 20120916
  3. PLASMA, FRESH FROZEN [Concomitant]
     Dosage: UNK
     Dates: start: 20120825

REACTIONS (2)
  - Death [Fatal]
  - Pulmonary haemorrhage [Fatal]
